FAERS Safety Report 21874115 (Version 1)
Quarter: 2023Q1

REPORT INFORMATION
  Report Type: Report from Study
  Country: EG (occurrence: EG)
  Receive Date: 20230117
  Receipt Date: 20230117
  Transmission Date: 20230417
  Serious: Yes (Life-Threatening, Hospitalization, Other)
  Sender: FDA-Public Use
  Company Number: EG-002147023-NVSC2022EG048494

PATIENT
  Age: 43 Year
  Sex: Female

DRUGS (7)
  1. HYRIMOZ [Suspect]
     Active Substance: ADALIMUMAB-ADAZ
     Indication: Psoriatic arthropathy
     Dosage: UNK
     Route: 065
     Dates: start: 20211212
  2. HYRIMOZ [Suspect]
     Active Substance: ADALIMUMAB-ADAZ
     Dosage: 40 MG EVERY OTHER WEEK
     Route: 065
     Dates: start: 20211212, end: 202209
  3. COSENTYX [Suspect]
     Active Substance: SECUKINUMAB
     Indication: Psoriatic arthropathy
     Dosage: UNK
     Route: 065
  4. DICLOFENAC SODIUM [Concomitant]
     Active Substance: DICLOFENAC SODIUM
     Indication: Psoriatic arthropathy
     Dosage: UNK (ONE OR TWO TABS DAILY)
     Route: 065
     Dates: start: 202109
  5. IBUPROFEN [Concomitant]
     Active Substance: IBUPROFEN
     Indication: Psoriatic arthropathy
     Dosage: UNK (WHEN NEEDED)
     Route: 065
     Dates: start: 202112
  6. RAPIDUS [Concomitant]
     Indication: Psoriatic arthropathy
     Dosage: UNK (WHEN NEEDED)
     Route: 065
     Dates: start: 202112
  7. CORTISONE [Concomitant]
     Active Substance: CORTISONE
     Indication: Psoriatic arthropathy
     Dosage: UNK (FOR 2 OR 3 WEEKS)
     Route: 065
     Dates: start: 202112

REACTIONS (13)
  - Intracranial pressure increased [Not Recovered/Not Resolved]
  - Papilloedema [Not Recovered/Not Resolved]
  - Visual field defect [Not Recovered/Not Resolved]
  - COVID-19 [Not Recovered/Not Resolved]
  - Ill-defined disorder [Recovering/Resolving]
  - Tachycardia [Recovering/Resolving]
  - Chest discomfort [Recovering/Resolving]
  - Respiration abnormal [Recovering/Resolving]
  - Psoriatic arthropathy [Unknown]
  - Pain [Unknown]
  - Fibrin D dimer increased [Not Recovered/Not Resolved]
  - Adverse drug reaction [Unknown]
  - Drug ineffective [Unknown]

NARRATIVE: CASE EVENT DATE: 20211201
